FAERS Safety Report 9349925 (Version 1)
Quarter: 2013Q2

REPORT INFORMATION
  Report Type: Spontaneous
  Country: GB (occurrence: GB)
  Receive Date: 20130614
  Receipt Date: 20130614
  Transmission Date: 20140414
  Serious: Yes (Disabling)
  Sender: FDA-Public Use
  Company Number: PHHY2013GB060680

PATIENT
  Age: 49 Year
  Sex: Female

DRUGS (15)
  1. CODEINE PHOSPHATE [Suspect]
     Dates: start: 20130603
  2. ALLOPURINOL [Concomitant]
     Dates: start: 20121210
  3. LEVOTHYROXINE [Concomitant]
     Dates: start: 20130220
  4. OMEPRAZOLE [Concomitant]
     Dates: start: 20130220
  5. PARACETAMOL [Concomitant]
     Dates: start: 20130220, end: 20130520
  6. AMLODIPINE [Concomitant]
     Dates: start: 20130220
  7. ESTRIOL [Concomitant]
     Dates: start: 20130220
  8. DICLOFENAC SODIUM [Concomitant]
     Dates: start: 20130225, end: 20130508
  9. CEFALEXIN [Concomitant]
     Dates: start: 20130319
  10. NAPROXEN [Concomitant]
     Dates: start: 20130320, end: 20130501
  11. HYDROCORTISONE [Concomitant]
     Dates: start: 20130420, end: 20130528
  12. MICONAZOLE [Concomitant]
     Dates: start: 20130429, end: 20130506
  13. DIPROBASE [Concomitant]
     Dates: start: 20130509, end: 20130510
  14. BENZOCAINE [Concomitant]
     Dates: start: 20130522
  15. PHENOXYMETHYLPENICILLIN [Concomitant]
     Dates: start: 20130603

REACTIONS (1)
  - Malaise [Recovered/Resolved]
